FAERS Safety Report 19618588 (Version 1)
Quarter: 2021Q3

REPORT INFORMATION
  Report Type: Spontaneous
  Country: US (occurrence: US)
  Receive Date: 20210727
  Receipt Date: 20210727
  Transmission Date: 20211014
  Serious: No
  Sender: FDA-Public Use
  Company Number: US-ROCHE-2819661

PATIENT
  Age: 43 Year
  Sex: Male

DRUGS (20)
  1. LONSURF [Suspect]
     Active Substance: TIPIRACIL HYDROCHLORIDE\TRIFLURIDINE
     Dosage: ON 12/MAR/2021, LAST DOSE WAS ADMINISTERED PRIOR TO EVENTS
     Route: 048
     Dates: start: 20210308
  2. CELEBREX [Concomitant]
     Active Substance: CELECOXIB
     Route: 048
  3. METHIMAZOLE. [Concomitant]
     Active Substance: METHIMAZOLE
     Dosage: 1 TABLET IN MORNING, 2 TABLET AT NOON, 1 TABLET IN EVENING
     Route: 048
  4. ONDANSETRON [Concomitant]
     Active Substance: ONDANSETRON
     Indication: NAUSEA
     Route: 048
  5. LONSURF [Suspect]
     Active Substance: TIPIRACIL HYDROCHLORIDE\TRIFLURIDINE
     Indication: OESOPHAGEAL CARCINOMA
     Dosage: CYCLE 1
     Route: 048
     Dates: start: 202101
  6. IVERMECTIN. [Concomitant]
     Active Substance: IVERMECTIN
     Dosage: TOTAL DOSE 10 MG 5 MG (1 IN 0.5 DAY)
  7. CIMETIDINE [Concomitant]
     Active Substance: CIMETIDINE
     Route: 048
  8. DIPYRIDAMOLE. [Concomitant]
     Active Substance: DIPYRIDAMOLE
     Route: 048
  9. NALTREXONE [Concomitant]
     Active Substance: NALTREXONE
  10. ATORVASTATIN [Concomitant]
     Active Substance: ATORVASTATIN
     Route: 048
  11. CYTOMEL [Concomitant]
     Active Substance: LIOTHYRONINE SODIUM
     Dosage: TOTAL DOSE 45 MCG
     Route: 048
  12. MEBENDAZOLE. [Concomitant]
     Active Substance: MEBENDAZOLE
  13. DOXYCYCLINE HYCLATE. [Concomitant]
     Active Substance: DOXYCYCLINE HYCLATE
     Dosage: TOTAL DOSE 200 MG
     Route: 048
  14. METFORMIN [Concomitant]
     Active Substance: METFORMIN HYDROCHLORIDE
     Dosage: TOTAL DOSE 2000 MG (500 MG 1 IN 0.25 DAY)
  15. THYMALFASIN [Concomitant]
     Active Substance: THYMALFASIN
     Dosage: 1.6 MG
     Route: 058
  16. CIALIS [Concomitant]
     Active Substance: TADALAFIL
     Route: 048
  17. CLARITIN [Concomitant]
     Active Substance: LORATADINE
     Route: 048
  18. XELODA [Suspect]
     Active Substance: CAPECITABINE
     Indication: OESOPHAGEAL CARCINOMA
     Dosage: TOTAL DAILY DOSE 1500 MG
     Route: 048
     Dates: start: 20200807
  19. CYTOMEL [Concomitant]
     Active Substance: LIOTHYRONINE SODIUM
     Dosage: TOTAL DOSE 30 MG
     Route: 048
  20. ITRACONAZOLE. [Concomitant]
     Active Substance: ITRACONAZOLE
     Dosage: 1 OR 2 CAPSULE (1 IN 0.5 DAY)
     Route: 048

REACTIONS (4)
  - Haemoglobin decreased [Not Recovered/Not Resolved]
  - Off label use [Unknown]
  - White blood cell count decreased [Not Recovered/Not Resolved]
  - Abdominal pain [Unknown]
